FAERS Safety Report 8242864-X (Version None)
Quarter: 2012Q1

REPORT INFORMATION
  Report Type: 
  Country: None (occurrence: None)
  Receive Date: 20120329
  Receipt Date: 20120327
  Transmission Date: 20120608
  Serious: Yes (Other)
  Sender: FDA-Public Use
  Company Number: US-PFIZER INC-2012079159

PATIENT
  Sex: Female
  Weight: 53.515 kg

DRUGS (1)
  1. FLECTOR [Suspect]
     Indication: PAIN
     Dosage: 1 DF, 2X/DAY
     Dates: start: 20120313, end: 20120315

REACTIONS (1)
  - RENAL FAILURE [None]
